FAERS Safety Report 17687923 (Version 1)
Quarter: 2020Q2

REPORT INFORMATION
  Report Type: Spontaneous
  Country: ES (occurrence: ES)
  Receive Date: 20200421
  Receipt Date: 20200421
  Transmission Date: 20200714
  Serious: Yes (Other)
  Sender: FDA-Public Use
  Company Number: NVSC2020ES105071

PATIENT
  Sex: Female

DRUGS (1)
  1. FUROSEMIDE. [Suspect]
     Active Substance: FUROSEMIDE
     Indication: CARDIAC FAILURE
     Dosage: DAILY DOSE OF 125 MG SUBCUTANEOUS
     Route: 041

REACTIONS (3)
  - Infusion site erythema [Recovered/Resolved]
  - Infusion site induration [Recovered/Resolved]
  - Cellulitis [Recovered/Resolved]
